FAERS Safety Report 13134781 (Version 1)
Quarter: 2017Q1

REPORT INFORMATION
  Report Type: Spontaneous
  Country: US (occurrence: US)
  Receive Date: 20170120
  Receipt Date: 20170120
  Transmission Date: 20170428
  Serious: Yes (Other)
  Sender: FDA-Public Use
  Company Number: US-LUNDBECK-DKLU2025226

PATIENT
  Sex: Male

DRUGS (2)
  1. SABRIL [Suspect]
     Active Substance: VIGABATRIN
     Indication: EPILEPSY
     Route: 048
  2. SABRIL [Suspect]
     Active Substance: VIGABATRIN
     Indication: SEIZURE

REACTIONS (2)
  - Infantile spasms [Unknown]
  - Drug dose omission [Unknown]
